FAERS Safety Report 8988854 (Version 1)
Quarter: 2012Q4

REPORT INFORMATION
  Report Type: Spontaneous
  Country: US (occurrence: None)
  Receive Date: 20121224
  Receipt Date: 20121224
  Transmission Date: 20130627
  Serious: Yes (Other)
  Sender: FDA-Public Use
  Company Number: None

PATIENT
  Age: 41 Year
  Sex: Male
  Weight: 127.01 kg

DRUGS (2)
  1. LAMICTAL (LAMOTRIGINE) TABLET [Suspect]
     Indication: SEIZURE
     Dosage: 100 mg 2 times per day po
     Route: 048
     Dates: start: 20050801, end: 20090315
  2. LAMOTRIGINE 100 MG TEVA [Suspect]
     Indication: SEIZURE

REACTIONS (4)
  - Feeling jittery [None]
  - Tremor [None]
  - Depression [None]
  - Hippocampal sclerosis [None]
